FAERS Safety Report 20897061 (Version 1)
Quarter: 2022Q2

REPORT INFORMATION
  Report Type: Report from Study
  Country: TH (occurrence: TH)
  Receive Date: 20220531
  Receipt Date: 20220531
  Transmission Date: 20220720
  Serious: Yes (Hospitalization, Other)
  Sender: FDA-Public Use
  Company Number: TH-BAYER-2022A073730

PATIENT
  Age: 81 Year
  Sex: Female

DRUGS (2)
  1. STIVARGA [Suspect]
     Active Substance: REGORAFENIB
     Indication: Colorectal cancer
     Dosage: UNK
     Dates: end: 202203
  2. STIVARGA [Suspect]
     Active Substance: REGORAFENIB
     Indication: Colorectal cancer
     Dosage: UNK
     Dates: start: 20220511

REACTIONS (4)
  - Hypertension [Unknown]
  - Headache [Unknown]
  - Gastrointestinal haemorrhage [Unknown]
  - Surgery [None]

NARRATIVE: CASE EVENT DATE: 20220501
